FAERS Safety Report 4797686-9 (Version None)
Quarter: 2005Q4

REPORT INFORMATION
  Report Type: 
  Country: None (occurrence: None)
  Receive Date: 20051013
  Receipt Date: 20051003
  Transmission Date: 20060501
  Serious: Yes (Hospitalization)
  Sender: FDA-Public Use
  Company Number: US-MERCK-0510USA02351

PATIENT
  Age: 55 Year
  Sex: Male
  Weight: 105 kg

DRUGS (5)
  1. VIOXX [Suspect]
     Indication: ARTHRITIS
     Route: 048
  2. IMDUR [Concomitant]
     Route: 065
  3. TOPROL-XL [Concomitant]
     Route: 065
  4. ASPIRIN [Concomitant]
     Route: 065
  5. GLUCOPHAGE [Concomitant]
     Route: 065

REACTIONS (2)
  - CORONARY ARTERY DISEASE [None]
  - MYOCARDIAL INFARCTION [None]
